FAERS Safety Report 6813396-8 (Version None)
Quarter: 2010Q3

REPORT INFORMATION
  Report Type: 
  Country: None (occurrence: None)
  Receive Date: 20100701
  Receipt Date: 20100621
  Transmission Date: 20110219
  Serious: Yes (Death, Hospitalization, Other)
  Sender: FDA-Public Use
  Company Number: US-GENZYME-RENA-1000751

PATIENT
  Sex: Male

DRUGS (1)
  1. RENVELA [Suspect]
     Indication: HYPERPHOSPHATAEMIA
     Dosage: 1.6 G, TID
     Route: 048
     Dates: start: 20100615

REACTIONS (7)
  - ASTHENIA [None]
  - BACTERIAL SEPSIS [None]
  - DYSPNOEA [None]
  - FAILURE TO THRIVE [None]
  - FLUID OVERLOAD [None]
  - METASTATIC NEOPLASM [None]
  - PNEUMONIA [None]
